FAERS Safety Report 18973416 (Version 5)
Quarter: 2021Q3

REPORT INFORMATION
  Report Type: Report from Study
  Country: US (occurrence: US)
  Receive Date: 20210305
  Receipt Date: 20210729
  Transmission Date: 20211014
  Serious: No
  Sender: FDA-Public Use
  Company Number: US-GLAXOSMITHKLINE-US2020AMR250544

PATIENT
  Age: 78 Year
  Sex: Female

DRUGS (1)
  1. BELANTAMAB MAFODOTIN. [Suspect]
     Active Substance: BELANTAMAB MAFODOTIN
     Indication: PRODUCT USED FOR UNKNOWN INDICATION
     Dosage: UNK
     Dates: start: 20201019

REACTIONS (5)
  - Night blindness [Unknown]
  - Keratopathy [Unknown]
  - Sensation of foreign body [Unknown]
  - Visual acuity reduced [Unknown]
  - Eye disorder [Unknown]

NARRATIVE: CASE EVENT DATE: 20201217
